FAERS Safety Report 11438970 (Version 1)
Quarter: 2015Q3

REPORT INFORMATION
  Report Type: Spontaneous
  Country: US (occurrence: US)
  Receive Date: 20150901
  Receipt Date: 20150901
  Transmission Date: 20151125
  Serious: No
  Sender: FDA-Public Use
  Company Number: US-009507513-1508USA012909

PATIENT
  Sex: Female

DRUGS (1)
  1. ASMANEX [Suspect]
     Active Substance: MOMETASONE FUROATE
     Dosage: ONE TO TWO PUFFS ONCE DAILY
     Route: 055

REACTIONS (2)
  - Product container issue [Unknown]
  - Circumstance or information capable of leading to medication error [Unknown]
